FAERS Safety Report 4389324-4 (Version None)
Quarter: 2004Q2

REPORT INFORMATION
  Report Type: 
  Country: None (occurrence: None)
  Receive Date: 20040628
  Receipt Date: 20040616
  Transmission Date: 20050107
  Serious: Yes (Hospitalization)
  Sender: FDA-Public Use
  Company Number: KII-2004-0011554

PATIENT
  Age: 52 Year
  Sex: Female

DRUGS (4)
  1. MORPHINE SULFATE [Suspect]
     Indication: PAIN
     Dosage: INTRAVENOUS
     Route: 042
     Dates: start: 20040129, end: 20040129
  2. PAXIL [Suspect]
     Dosage: ORAL
     Route: 048
  3. ANTIINFLAMMATORY /ANTIRHEUMATIC PRODUCTS (ANTIINFLAMMATORY /ANTIRHEUMA [Suspect]
     Dosage: ORAL
     Route: 048
  4. ESTROGENS (ESTROGENS) [Suspect]
     Dosage: ORAL
     Route: 048

REACTIONS (10)
  - AGITATION [None]
  - CEREBRAL HAEMORRHAGE [None]
  - DRUG INTERACTION [None]
  - INJURY [None]
  - MARITAL PROBLEM [None]
  - MEDICATION ERROR [None]
  - MYALGIA [None]
  - NEOLOGISM [None]
  - PSYCHOTIC DISORDER [None]
  - ROAD TRAFFIC ACCIDENT [None]
